FAERS Safety Report 7457606-5 (Version None)
Quarter: 2011Q2

REPORT INFORMATION
  Report Type: 
  Country: None (occurrence: None)
  Receive Date: 20110504
  Receipt Date: 20110429
  Transmission Date: 20111010
  Serious: Yes (Other)
  Sender: FDA-Public Use
  Company Number: US-ELI_LILLY_AND_COMPANY-US201103008541

PATIENT
  Sex: Female
  Weight: 79 kg

DRUGS (18)
  1. LORAZEPAM [Concomitant]
     Dosage: 1.0 MG, OTHER
     Dates: start: 20110204
  2. GEMCITABINE HYDROCHLORIDE [Suspect]
     Indication: NEOPLASM
     Dosage: 800 MG/M2, OTHER
     Route: 042
     Dates: start: 20110204, end: 20110311
  3. GEMCITABINE HYDROCHLORIDE [Suspect]
     Dosage: 800 MG/M2, OTHER
     Route: 042
     Dates: start: 20110318
  4. CENTRUM SILVER [Concomitant]
     Indication: VITAMIN SUPPLEMENTATION
     Dosage: UNK UNK, QD
     Dates: start: 20110126
  5. PROCHLORPERAZINE EDISYLATE [Concomitant]
     Indication: PROPHYLAXIS
     Dosage: 10 MG, OTHER
     Dates: start: 20110204
  6. OXYCODONE [Concomitant]
     Indication: PAIN OF SKIN
     Dosage: 5 MG, EVERY 6 HRS
     Dates: start: 20110126
  7. DEXAMETHASONE PHOSPHATE [Concomitant]
     Indication: PROPHYLAXIS
     Dosage: 4 MG, OTHER
     Dates: start: 20110204
  8. SODIUM CHLORIDE [Concomitant]
     Dosage: 250 ML, OTHER
     Dates: start: 20110204
  9. CARBOPLATIN [Suspect]
     Dosage: UNK, OTHER
     Route: 042
     Dates: start: 20110318
  10. LORAZEPAM [Concomitant]
     Indication: PROPHYLAXIS
     Dosage: 0.5 MG, OTHER
     Dates: start: 20110204
  11. ONDANSETRON [Concomitant]
     Indication: PROPHYLAXIS
     Dosage: 16 MG, UNK
     Dates: start: 20110204
  12. IBUPROFEN [Concomitant]
     Indication: MUSCULOSKELETAL PAIN
     Dosage: 200 MG, OTHER
     Dates: start: 20110105
  13. OTHER PHARMA COMPANY INV DRUG [Suspect]
     Indication: NEOPLASM
     Dosage: 120 MG, OTHER
     Route: 048
     Dates: start: 20110225, end: 20110311
  14. OTHER PHARMA COMPANY INV DRUG [Suspect]
     Dosage: 120 MG, OTHER
     Route: 048
     Dates: start: 20110318
  15. CARBOPLATIN [Suspect]
     Indication: NEOPLASM
     Dosage: UNK, OTHER
     Route: 042
     Dates: start: 20110204, end: 20110311
  16. ESOMEPRAZOLE MAGNESIUM [Concomitant]
     Indication: DYSPEPSIA
     Dosage: 40 MG, UNK
     Dates: start: 20110204
  17. HEPARIN [Concomitant]
     Dosage: 500 U, OTHER
     Dates: start: 20110204
  18. LEVOTHYROXINE SODIUM [Concomitant]
     Indication: HYPOTHYROIDISM
     Dosage: 50
     Dates: start: 20101222

REACTIONS (2)
  - EPISTAXIS [None]
  - THROMBOCYTOPENIA [None]
